FAERS Safety Report 22683424 (Version 2)
Quarter: 2025Q3

REPORT INFORMATION
  Report Type: Report from Study
  Country: US (occurrence: US)
  Receive Date: 20230707
  Receipt Date: 20250922
  Transmission Date: 20251021
  Serious: Yes (Hospitalization, Other)
  Sender: JAZZ
  Company Number: US-JAZZ PHARMACEUTICALS-2023-US-014567

PATIENT
  Sex: Female

DRUGS (5)
  1. EPIDIOLEX [Suspect]
     Active Substance: CANNABIDIOL
     Indication: Partial seizures
     Dosage: 5.2 MILLILITER, BID
     Dates: start: 202304
  2. EPIDIOLEX [Suspect]
     Active Substance: CANNABIDIOL
     Indication: Focal dyscognitive seizures
     Dosage: 3 MILLILITER, BID
  3. EPIDIOLEX [Suspect]
     Active Substance: CANNABIDIOL
     Dosage: 5 MILLILITER, BID
     Dates: start: 202205
  4. TRILEPTAL [Suspect]
     Active Substance: OXCARBAZEPINE
     Indication: Product used for unknown indication
  5. TRILEPTAL [Suspect]
     Active Substance: OXCARBAZEPINE

REACTIONS (3)
  - Seizure [Unknown]
  - Headache [Unknown]
  - Off label use [Unknown]
